FAERS Safety Report 7201719-X (Version None)
Quarter: 2010Q4

REPORT INFORMATION
  Report Type: 
  Country: None (occurrence: None)
  Receive Date: 20101229
  Receipt Date: 20101222
  Transmission Date: 20110411
  Serious: Yes (Other)
  Sender: FDA-Public Use
  Company Number: BR-ROCHE-746762

PATIENT
  Sex: Female

DRUGS (6)
  1. TOCILIZUMAB [Suspect]
     Dosage: FORM: INFUSION
     Route: 042
     Dates: start: 20100801
  2. PRELONE [Concomitant]
  3. CALTRATE [Concomitant]
  4. OMEPRAZOLE [Concomitant]
  5. VITAMIN B COMPLEX CAP [Concomitant]
  6. CAPOTEN [Concomitant]

REACTIONS (1)
  - BRONCHOMALACIA [None]
